FAERS Safety Report 5684787-6 (Version None)
Quarter: 2008Q1

REPORT INFORMATION
  Report Type: 
  Country: None (occurrence: None)
  Receive Date: 20080328
  Receipt Date: 20070926
  Transmission Date: 20080703
  Serious: Yes (Life-Threatening)
  Sender: FDA-Public Use
  Company Number: US-BRISTOL-MYERS SQUIBB COMPANY-13914619

PATIENT
  Age: 84 Year
  Sex: Male

DRUGS (5)
  1. ERBITUX [Suspect]
     Indication: NASOPHARYNGEAL CANCER
     Dosage: 100 MG VIAL: LOT #:06CO0765A EXP FEB-2010 +LOT #:07CO0242A EXP JUN-2010 (NDC #:66733-0948-23,5-7 CC
     Route: 042
     Dates: start: 20070920, end: 20070920
  2. DECADRON [Concomitant]
     Route: 042
     Dates: start: 20070920, end: 20070920
  3. BENADRYL [Concomitant]
     Route: 042
     Dates: start: 20070920, end: 20070920
  4. ALOXI [Concomitant]
     Route: 042
     Dates: start: 20070920, end: 20070920
  5. TYLENOL (CAPLET) [Concomitant]
     Route: 048
     Dates: start: 20070920, end: 20070920

REACTIONS (1)
  - CARDIO-RESPIRATORY ARREST [None]
